FAERS Safety Report 6173716-7 (Version None)
Quarter: 2009Q2

REPORT INFORMATION
  Report Type: 
  Country: None (occurrence: None)
  Receive Date: 20090430
  Receipt Date: 20090421
  Transmission Date: 20091009
  Serious: Yes (Other)
  Sender: FDA-Public Use
  Company Number: PHEH2007US15132

PATIENT
  Sex: Female

DRUGS (17)
  1. ENABLEX [Suspect]
     Dosage: 7.5 MG, UNK
  2. ENABLEX [Suspect]
     Dosage: 15 MG, UNK
     Dates: start: 20090401
  3. TUMS [Concomitant]
  4. NASACORT AQ [Concomitant]
  5. ZYRTEC [Concomitant]
  6. ULTRAM [Concomitant]
  7. FLAXSEED OIL [Concomitant]
  8. PREVACID [Concomitant]
  9. SYNTHROID [Concomitant]
  10. PREMARIN [Concomitant]
  11. LASIX [Concomitant]
  12. POTASSIUM CHLORIDE [Concomitant]
  13. AMITIZA [Concomitant]
  14. FLORAQUIN [Concomitant]
  15. GLYCOLAX [Concomitant]
  16. CALTRATE +D [Concomitant]
  17. DIGOXIN [Concomitant]

REACTIONS (8)
  - CONSTIPATION [None]
  - DEPRESSED LEVEL OF CONSCIOUSNESS [None]
  - FAECAL INCONTINENCE [None]
  - FEELING ABNORMAL [None]
  - HYPERSOMNIA [None]
  - LETHARGY [None]
  - SOMNOLENCE [None]
  - SURGERY [None]
